FAERS Safety Report 5743418-7 (Version None)
Quarter: 2008Q2

REPORT INFORMATION
  Report Type: 
  Country: None (occurrence: None)
  Receive Date: 20080519
  Receipt Date: 20080519
  Transmission Date: 20081010
  Serious: No
  Sender: FDA-Public Use
  Company Number: None

PATIENT
  Age: 75 Year
  Sex: Male

DRUGS (1)
  1. TARCEVA [Suspect]
     Dosage: 150MG QD PO
     Route: 048
     Dates: start: 20080301

REACTIONS (1)
  - RASH PUSTULAR [None]
